FAERS Safety Report 8374600-0 (Version None)
Quarter: 2012Q2

REPORT INFORMATION
  Report Type: 
  Country: None (occurrence: None)
  Receive Date: 20120521
  Receipt Date: 20120508
  Transmission Date: 20120825
  Serious: Yes (Death, Life-Threatening)
  Sender: FDA-Public Use
  Company Number: SE-JNJFOC-20120508333

PATIENT
  Age: 79 Year
  Sex: Male

DRUGS (6)
  1. PREDNISOLONE [Concomitant]
     Route: 065
     Dates: start: 20050207, end: 20081119
  2. SULFASALAZINE [Concomitant]
     Route: 065
     Dates: start: 20001219, end: 20010626
  3. REMICADE [Suspect]
     Indication: RHEUMATOID ARTHRITIS
     Route: 042
     Dates: start: 20050207, end: 20110909
  4. PREDNISOLONE [Concomitant]
     Route: 065
     Dates: start: 20001219, end: 20011003
  5. ANTIMALARIALS [Concomitant]
     Route: 065
     Dates: start: 20010319, end: 20010626
  6. METHOTREXATE [Concomitant]
     Route: 065
     Dates: start: 20001219

REACTIONS (1)
  - PANCREATITIS NECROTISING [None]
